FAERS Safety Report 5304353-1 (Version None)
Quarter: 2007Q2

REPORT INFORMATION
  Report Type: 
  Country: None (occurrence: None)
  Receive Date: 20070423
  Receipt Date: 20070412
  Transmission Date: 20071010
  Serious: Yes (Death)
  Sender: FDA-Public Use
  Company Number: SE-ROCHE-477093

PATIENT
  Age: 51 Year
  Sex: Male
  Weight: 77 kg

DRUGS (11)
  1. XELODA [Suspect]
     Indication: DRUG USE FOR UNKNOWN INDICATION
     Route: 065
     Dates: start: 20061221
  2. PLACEBO [Suspect]
     Dosage: GIVEN ON DAY 1
     Route: 042
     Dates: start: 20060224, end: 20061018
  3. ERLOTINIB [Suspect]
     Route: 048
     Dates: start: 20060224, end: 20061220
  4. GEMCITABINE HCL [Suspect]
     Dosage: GIVEN ON DAY 1,8,15,22 (4 WEEKS CYCLE)
     Route: 042
     Dates: start: 20060224, end: 20061220
  5. OXALIPLATIN [Suspect]
     Indication: DRUG USE FOR UNKNOWN INDICATION
     Dosage: REPORTED AS ^INFUSION^.
     Route: 065
     Dates: start: 20061221
  6. NOVOMIX [Suspect]
     Indication: DRUG USE FOR UNKNOWN INDICATION
     Route: 065
     Dates: start: 20050615
  7. UNSPECIFIED DRUG [Suspect]
     Indication: DRUG USE FOR UNKNOWN INDICATION
     Dosage: RESPORTED AS ^T.CREON^
     Route: 048
  8. CIPROFLOXACIN HYDROCHLORIDE [Suspect]
     Indication: DRUG USE FOR UNKNOWN INDICATION
     Dosage: DRUG REPORTED AS ^T. CIPROXIN^.
     Route: 065
     Dates: start: 20061127, end: 20061205
  9. CIPROFLOXACIN HYDROCHLORIDE [Suspect]
     Route: 065
     Dates: start: 20061221
  10. CITODON [Suspect]
     Indication: DRUG USE FOR UNKNOWN INDICATION
     Dosage: DRUG REPORTED AS ^T. CITODON^.
     Route: 065
     Dates: start: 20061015
  11. DOLCONTIN [Suspect]
     Indication: DRUG USE FOR UNKNOWN INDICATION
     Dosage: DRUG REPORTED AS ^T. DOLCONTIN^.
     Route: 065
     Dates: start: 20061215

REACTIONS (1)
  - CARDIAC FAILURE [None]
